FAERS Safety Report 5958282-0 (Version None)
Quarter: 2008Q4

REPORT INFORMATION
  Report Type: 
  Country: None (occurrence: None)
  Receive Date: 20081117
  Receipt Date: 20081110
  Transmission Date: 20090506
  Serious: Yes (Other)
  Sender: FDA-Public Use
  Company Number: 2008SP023078

PATIENT

DRUGS (1)
  1. MIRALAX [Suspect]
     Indication: DRUG USE FOR UNKNOWN INDICATION
     Dosage: PO
     Route: 048
     Dates: start: 20081103, end: 20081105

REACTIONS (4)
  - DIARRHOEA [None]
  - DRUG TOXICITY [None]
  - MALAISE [None]
  - SWOLLEN TONGUE [None]
